FAERS Safety Report 9220751 (Version 2)
Quarter: 2013Q2

REPORT INFORMATION
  Report Type: Spontaneous
  Country: NL (occurrence: NL)
  Receive Date: 20130409
  Receipt Date: 20130422
  Transmission Date: 20140414
  Serious: Yes (Other)
  Sender: FDA-Public Use
  Company Number: NL-JNJFOC-20130318317

PATIENT
  Age: 13 Year
  Sex: Male

DRUGS (1)
  1. CONCERTA [Suspect]
     Indication: ATTENTION DEFICIT/HYPERACTIVITY DISORDER
     Route: 048

REACTIONS (8)
  - Hallucination [Recovered/Resolved]
  - Extrapyramidal disorder [Recovered/Resolved]
  - Aggression [Recovered/Resolved]
  - Laryngitis [Unknown]
  - Somnolence [Recovered/Resolved]
  - Diplopia [Recovered/Resolved]
  - Headache [Recovered/Resolved]
  - Abdominal pain upper [Recovered/Resolved]
